FAERS Safety Report 10811565 (Version 1)
Quarter: 2015Q1

REPORT INFORMATION
  Report Type: Spontaneous
  Country: US (occurrence: None)
  Receive Date: 20150213
  Receipt Date: 20150213
  Transmission Date: 20150721
  Serious: Yes (Other)
  Sender: FDA-Public Use
  Company Number: None

PATIENT
  Age: 31 Year
  Sex: Female
  Weight: 57.15 kg

DRUGS (1)
  1. METHYLPHENIDATE HYDROCHLORIDE ER [Suspect]
     Active Substance: METHYLPHENIDATE HYDROCHLORIDE
     Indication: ATTENTION DEFICIT/HYPERACTIVITY DISORDER
     Dosage: 1 PILL ONCE DAILY TAKEN BY MOUTH
     Route: 048
     Dates: start: 20150115, end: 20150119

REACTIONS (9)
  - Heart rate increased [None]
  - Unevaluable event [None]
  - Emotional disorder [None]
  - Depression [None]
  - Feeling abnormal [None]
  - Speech disorder [None]
  - Palpitations [None]
  - Depressed mood [None]
  - Fatigue [None]

NARRATIVE: CASE EVENT DATE: 20150116
